FAERS Safety Report 23331373 (Version 1)
Quarter: 2023Q4

REPORT INFORMATION
  Report Type: Spontaneous
  Country: US (occurrence: None)
  Receive Date: 20231221
  Receipt Date: 20231221
  Transmission Date: 20240110
  Serious: Yes (Disabling)
  Sender: FDA-Public Use
  Company Number: None

PATIENT
  Age: 72 Year
  Sex: Female
  Weight: 60.75 kg

DRUGS (14)
  1. PREGABALIN [Suspect]
     Active Substance: PREGABALIN
     Indication: Fibromyalgia
     Dosage: OTHER QUANTITY : 1 CAPSULE(S);?FREQUENCY : TWICE A DAY;?
     Route: 048
     Dates: start: 20230801, end: 20231210
  2. AMLODIPINE [Concomitant]
     Active Substance: AMLODIPINE BESYLATE
  3. HYDROCHLOROTHIAZIDE [Concomitant]
     Active Substance: HYDROCHLOROTHIAZIDE
  4. rosuvastatin apixaban [Concomitant]
  5. NP thyroid dicyclomine [Concomitant]
  6. OMEPRAZOLE [Concomitant]
     Active Substance: OMEPRAZOLE
  7. DULOXETINE [Concomitant]
     Active Substance: DULOXETINE
  8. TOPIRAMATE [Concomitant]
  9. BUPRENORPHINE [Concomitant]
     Active Substance: BUPRENORPHINE
  10. methocarbamol (prn) [Concomitant]
  11. ASPIRIN [Concomitant]
     Active Substance: ASPIRIN
  12. IBUPROFEN [Concomitant]
     Active Substance: IBUPROFEN
  13. CALCIUM\MAGNESIUM [Concomitant]
     Active Substance: CALCIUM\MAGNESIUM
  14. glucosamine/chondroitin [Concomitant]

REACTIONS (5)
  - Abdominal pain [None]
  - Abdominal distension [None]
  - Megacolon [None]
  - Decreased appetite [None]
  - Frequent bowel movements [None]

NARRATIVE: CASE EVENT DATE: 20231112
